FAERS Safety Report 13577971 (Version 1)
Quarter: 2017Q2

REPORT INFORMATION
  Report Type: Spontaneous
  Country: US (occurrence: US)
  Receive Date: 20170524
  Receipt Date: 20170524
  Transmission Date: 20170830
  Serious: No
  Sender: FDA-Public Use
  Company Number: US-ASTRAZENECA-2017SE54798

PATIENT
  Age: 16 Year
  Sex: Male

DRUGS (1)
  1. SYMBICORT [Suspect]
     Active Substance: BUDESONIDE\FORMOTEROL FUMARATE DIHYDRATE
     Dosage: 160/4.5 MCG, NKNOWN UNKNOWN
     Route: 055
     Dates: end: 201705

REACTIONS (3)
  - Heart rate decreased [Unknown]
  - Syncope [Unknown]
  - Arrhythmia [Unknown]
